FAERS Safety Report 8500898-1 (Version None)
Quarter: 2012Q3

REPORT INFORMATION
  Report Type: 
  Country: None (occurrence: None)
  Receive Date: 20120710
  Receipt Date: 20120703
  Transmission Date: 20120928
  Serious: Yes (Hospitalization, Other)
  Sender: FDA-Public Use
  Company Number: PHHY2012FR058070

PATIENT
  Sex: Male

DRUGS (2)
  1. CLOZAPINE [Suspect]
     Indication: CONFUSIONAL STATE
     Dosage: 12.5 MG, QD
     Route: 048
     Dates: start: 20120601, end: 20120606
  2. SINEMET [Concomitant]
     Dosage: 1 DF, (100/10)
     Route: 048

REACTIONS (5)
  - FALL [None]
  - ACETABULUM FRACTURE [None]
  - CEREBROVASCULAR DISORDER [None]
  - BLOOD PRESSURE DIASTOLIC DECREASED [None]
  - ALTERED STATE OF CONSCIOUSNESS [None]
